FAERS Safety Report 5169068-1 (Version None)
Quarter: 2006Q4

REPORT INFORMATION
  Report Type: 
  Country: None (occurrence: None)
  Receive Date: 20061201
  Receipt Date: 20061121
  Transmission Date: 20070319
  Serious: Yes (Other)
  Sender: FDA-Public Use
  Company Number: 2006131985

PATIENT
  Sex: Female

DRUGS (2)
  1. LUBRIDERM DAILY MOISTURE [Suspect]
     Dosage: MORE THAN 100 BOTTLES,TOPICAL
     Route: 061
     Dates: start: 19930101
  2. LORATADINE [Concomitant]

REACTIONS (1)
  - BREAST CANCER FEMALE [None]
